FAERS Safety Report 6881740-1 (Version None)
Quarter: 2010Q3

REPORT INFORMATION
  Report Type: 
  Country: None (occurrence: None)
  Receive Date: 20100729
  Receipt Date: 20100722
  Transmission Date: 20110219
  Serious: No
  Sender: FDA-Public Use
  Company Number: 2009BI017670

PATIENT
  Age: 50 Year
  Sex: Female

DRUGS (3)
  1. TYSABRI [Suspect]
     Indication: MULTIPLE SCLEROSIS
     Route: 042
     Dates: start: 20061114, end: 20090101
  2. TYSABRI [Suspect]
     Route: 042
     Dates: start: 20090101
  3. AVONEX [Concomitant]
     Indication: MULTIPLE SCLEROSIS
     Route: 030
     Dates: start: 19971001

REACTIONS (8)
  - CHILLS [None]
  - DRUG SPECIFIC ANTIBODY PRESENT [None]
  - HERPES ZOSTER [None]
  - HYPERSENSITIVITY [None]
  - MYALGIA [None]
  - RASH [None]
  - SCIATIC NERVE NEUROPATHY [None]
  - THERMAL BURN [None]
